FAERS Safety Report 24966812 (Version 2)
Quarter: 2025Q1

REPORT INFORMATION
  Report Type: Spontaneous
  Country: FR (occurrence: FR)
  Receive Date: 20250213
  Receipt Date: 20250310
  Transmission Date: 20250409
  Serious: Yes (Hospitalization)
  Sender: PFIZER
  Company Number: None

PATIENT
  Age: 86 Year
  Sex: Male
  Weight: 85 kg

DRUGS (15)
  1. PAXLOVID [Interacting]
     Active Substance: NIRMATRELVIR\RITONAVIR
     Indication: COVID-19
     Dosage: [NIRMATRELVIR 300 MG]/[RITONAVIR 100 MG]; 2X/DAY
     Route: 048
     Dates: start: 20241017, end: 20241022
  2. ATORVASTATIN CALCIUM TRIHYDRATE [Interacting]
     Active Substance: ATORVASTATIN CALCIUM TRIHYDRATE
     Indication: Embolic stroke
     Route: 048
     Dates: start: 20241014, end: 20241016
  3. ATORVASTATIN CALCIUM TRIHYDRATE [Interacting]
     Active Substance: ATORVASTATIN CALCIUM TRIHYDRATE
     Indication: Dyslipidaemia
     Route: 048
     Dates: start: 20241023, end: 20241111
  4. ELIQUIS [Concomitant]
     Active Substance: APIXABAN
     Indication: Atrial fibrillation
     Dosage: 5 MG, 2X/DAY (5 MG MORNING AND EVENING)
     Route: 048
     Dates: end: 202410
  5. ELIQUIS [Concomitant]
     Active Substance: APIXABAN
     Dates: start: 20241023
  6. BISOPROLOL FUMARATE [Concomitant]
     Active Substance: BISOPROLOL FUMARATE
     Indication: Atrial fibrillation
     Dosage: 10 MG, 1X/DAY (10 MG MORNING)
     Route: 048
     Dates: end: 202410
  7. BISOPROLOL FUMARATE [Concomitant]
     Active Substance: BISOPROLOL FUMARATE
     Indication: Hypertension
     Dosage: 5 MG, 1X/DAY
     Route: 048
     Dates: start: 202410
  8. BISOPROLOL FUMARATE [Concomitant]
     Active Substance: BISOPROLOL FUMARATE
     Dosage: 10 MG, 1X/DAY (10 MG MORNING)
     Route: 048
     Dates: start: 20241023
  9. FINASTERIDE [Concomitant]
     Active Substance: FINASTERIDE
     Indication: Benign prostatic hyperplasia
     Dosage: 5 MG, 1X/DAY (5 MG EVENING)
     Route: 048
  10. AMLODIPINE [Concomitant]
     Active Substance: AMLODIPINE BESYLATE
     Indication: Hypertension
     Dosage: 10 MG, 1X/DAY (5 MG 2 TABLETS MORNING)
     Route: 048
  11. AMLODIPINE [Concomitant]
     Active Substance: AMLODIPINE BESYLATE
     Dates: start: 20241023
  12. HYDROCHLOROTHIAZIDE [Concomitant]
     Active Substance: HYDROCHLOROTHIAZIDE
     Indication: Hypertension
     Dosage: 12.5 MG, 1X/DAY (12.5 MG MORNING)
     Route: 048
  13. IRBESARTAN [Concomitant]
     Active Substance: IRBESARTAN
     Indication: Hypertension
     Dosage: 300 MG, 1X/DAY (300 MG MORNING)
     Route: 048
  14. ACETAMINOPHEN [Concomitant]
     Active Substance: ACETAMINOPHEN
     Indication: Product used for unknown indication
     Route: 048
  15. UNSPECIFIED INGREDIENT [Concomitant]
     Active Substance: UNSPECIFIED INGREDIENT
     Dates: start: 202410, end: 202410

REACTIONS (5)
  - Drug interaction [Recovering/Resolving]
  - Tendon rupture [Recovering/Resolving]
  - Gait disturbance [Unknown]
  - Tendon calcification [Unknown]
  - Tendon pain [Unknown]

NARRATIVE: CASE EVENT DATE: 20241023
